FAERS Safety Report 6167865-7 (Version None)
Quarter: 2009Q2

REPORT INFORMATION
  Report Type: 
  Country: None (occurrence: None)
  Receive Date: 20090427
  Receipt Date: 20090423
  Transmission Date: 20091009
  Serious: Yes (Hospitalization, Other)
  Sender: FDA-Public Use
  Company Number: US-ROXANE LABORATORIES, INC.-2009-RO-00402RO

PATIENT
  Sex: Male
  Weight: 59 kg

DRUGS (13)
  1. METHADONE HCL [Suspect]
     Indication: PAIN
     Dosage: 100MG
     Route: 048
     Dates: end: 20090401
  2. METHADONE HCL [Suspect]
     Route: 048
     Dates: start: 20090401, end: 20090401
  3. CIMZIA [Suspect]
     Indication: CROHN'S DISEASE
     Route: 058
     Dates: start: 20081101
  4. FOLIC ACID [Concomitant]
     Dosage: 1MG
     Route: 048
  5. PROMETHAZINE [Concomitant]
     Dosage: 50MG
     Route: 048
  6. MIRAPEX [Concomitant]
     Route: 048
  7. CELEBREX [Concomitant]
     Dosage: 200MG
     Route: 048
     Dates: start: 20070101
  8. PREVACID [Concomitant]
     Dosage: 30MG
     Route: 048
     Dates: start: 20070101
  9. PRAZSOIN HCL [Concomitant]
     Dosage: 2MG
     Route: 048
     Dates: start: 20070101
  10. GABAPENTIN [Concomitant]
     Dosage: 1200MG
     Route: 048
     Dates: start: 20070101
  11. PREDNISONE [Concomitant]
     Dosage: 5MG
     Route: 048
     Dates: start: 20070101
  12. ACTONEL [Concomitant]
     Route: 048
     Dates: start: 20070101
  13. MARIJUANA [Concomitant]
     Route: 055

REACTIONS (4)
  - COLONIC FISTULA [None]
  - OVERDOSE [None]
  - THERAPEUTIC AGENT TOXICITY [None]
  - TOOTH INFECTION [None]
